FAERS Safety Report 9916965 (Version 4)
Quarter: 2014Q3

REPORT INFORMATION
  Report Type: Spontaneous
  Country: US (occurrence: US)
  Receive Date: 20140221
  Receipt Date: 20140721
  Transmission Date: 20150326
  Serious: Yes (Hospitalization, Disabling, Other)
  Sender: FDA-Public Use
  Company Number: US-009507513-1204USA00550

PATIENT
  Sex: Female
  Weight: 66.67 kg

DRUGS (8)
  1. FOLIC ACID. [Concomitant]
     Active Substance: FOLIC ACID
     Indication: ROUTINE HEALTH MAINTENANCE
     Dosage: UNK
     Dates: start: 2000
  2. VITAMINS (UNSPECIFIED) [Concomitant]
     Active Substance: VITAMINS
     Indication: ROUTINE HEALTH MAINTENANCE
     Dosage: UNK
     Dates: start: 1990
  3. CALCIUM (UNSPECIFIED) [Concomitant]
     Active Substance: CALCIUM
     Indication: ROUTINE HEALTH MAINTENANCE
     Dosage: UNK
     Dates: start: 2000
  4. ALENDRONATE SODIUM. [Suspect]
     Active Substance: ALENDRONATE SODIUM
     Indication: OSTEOPOROSIS
     Dosage: 70 MG, UNK
     Route: 048
     Dates: start: 200803, end: 200909
  5. VITAMIN D [Concomitant]
     Active Substance: CHOLECALCIFEROL
     Indication: ROUTINE HEALTH MAINTENANCE
     Dosage: UNK
     Dates: start: 2000
  6. VITAMIN E [Concomitant]
     Active Substance: .ALPHA.-TOCOPHEROL
     Indication: ROUTINE HEALTH MAINTENANCE
     Dosage: UNK
     Dates: start: 2000
  7. FOSAMAX [Suspect]
     Active Substance: ALENDRONATE SODIUM
     Indication: OSTEOPOROSIS
     Dosage: 70 MG, UNK
     Route: 048
     Dates: start: 200004, end: 200802
  8. CORTICOSTEROIDS (UNSPECIFIED) [Concomitant]
     Active Substance: UNSPECIFIED INGREDIENT
     Indication: ARTHRITIS
     Dosage: UNK
     Dates: start: 1992

REACTIONS (46)
  - Asthma [Unknown]
  - Low turnover osteopathy [Unknown]
  - Pelvic pain [Unknown]
  - Femur fracture [Recovered/Resolved]
  - Arthralgia [Unknown]
  - Intervertebral disc degeneration [Unknown]
  - Asthma [Unknown]
  - Osteoarthritis [Unknown]
  - Pain in extremity [Unknown]
  - Asthma [Unknown]
  - Nausea [Unknown]
  - Osteoporosis [Unknown]
  - Spinal compression fracture [Unknown]
  - Femur fracture [Recovering/Resolving]
  - Road traffic accident [Unknown]
  - Laparoscopy [Unknown]
  - Rib fracture [Recovering/Resolving]
  - Anaemia [Unknown]
  - Asthma [Unknown]
  - Bladder neck suspension [Unknown]
  - Essential hypertension [Unknown]
  - Depression [Unknown]
  - Eye laser surgery [Unknown]
  - Cataract operation [Unknown]
  - Femur fracture [Recovered/Resolved]
  - Renal failure [Unknown]
  - Gout [Unknown]
  - Urinary tract infection [Unknown]
  - Hypercholesterolaemia [Unknown]
  - Ovarian germ cell teratoma benign [Unknown]
  - Chronic obstructive pulmonary disease [Not Recovered/Not Resolved]
  - Drug ineffective [Unknown]
  - Hip arthroplasty [Unknown]
  - Abdominal pain lower [Unknown]
  - Osteoarthritis [Not Recovered/Not Resolved]
  - Sjogren^s syndrome [Unknown]
  - Intramedullary rod insertion [Unknown]
  - Hip arthroplasty [Unknown]
  - Thoracic vertebral fracture [Unknown]
  - Vitamin D deficiency [Unknown]
  - Pathological fracture [Unknown]
  - Urinary incontinence [Unknown]
  - Wrist fracture [Unknown]
  - Fall [Unknown]
  - Uterine leiomyoma [Unknown]
  - Foot fracture [Unknown]

NARRATIVE: CASE EVENT DATE: 200107
